FAERS Safety Report 17387042 (Version 3)
Quarter: 2020Q1

REPORT INFORMATION
  Report Type: Spontaneous
  Country: US (occurrence: US)
  Receive Date: 20200206
  Receipt Date: 20200213
  Transmission Date: 20200409
  Serious: Yes (Hospitalization, Other)
  Sender: FDA-Public Use
  Company Number: US-ALEXION PHARMACEUTICALS INC.-A202001279

PATIENT
  Age: 23 Year
  Sex: Female
  Weight: 91.6 kg

DRUGS (2)
  1. CIPROFLOXACIN. [Concomitant]
     Active Substance: CIPROFLOXACIN
     Indication: PROPHYLAXIS
     Dosage: UNK
     Route: 065
  2. ULTOMIRIS [Suspect]
     Active Substance: RAVULIZUMAB-CWVZ
     Indication: PAROXYSMAL NOCTURNAL HAEMOGLOBINURIA
     Dosage: 2700 MG, SINGLE
     Route: 042
     Dates: start: 20191227, end: 20191227

REACTIONS (25)
  - Abdominal discomfort [Recovered/Resolved]
  - Red blood cell count decreased [Unknown]
  - Lymphocyte count decreased [Unknown]
  - Reticulocyte percentage increased [Unknown]
  - Photophobia [Recovered/Resolved]
  - Blood glucose increased [Unknown]
  - Blood calcium increased [Unknown]
  - Red cell distribution width increased [Unknown]
  - Alanine aminotransferase decreased [Unknown]
  - Globulins increased [Unknown]
  - Haematocrit decreased [Unknown]
  - Mean cell haemoglobin increased [Unknown]
  - Chills [Recovered/Resolved]
  - Headache [Recovered/Resolved]
  - Blood lactate dehydrogenase increased [Unknown]
  - Nausea [Recovered/Resolved]
  - Neutrophil count increased [Unknown]
  - Blood bilirubin increased [Unknown]
  - Injection site cellulitis [Recovered/Resolved]
  - Respiratory syncytial virus test positive [Recovered/Resolved]
  - Haemoglobin decreased [Unknown]
  - Mean cell volume increased [Unknown]
  - Exposure during pregnancy [Not Recovered/Not Resolved]
  - Dyspnoea [Recovered/Resolved]
  - Myalgia [Recovered/Resolved]

NARRATIVE: CASE EVENT DATE: 201912
